FAERS Safety Report 6962021-4 (Version None)
Quarter: 2010Q3

REPORT INFORMATION
  Report Type: 
  Country: None (occurrence: None)
  Receive Date: 20100902
  Receipt Date: 20100817
  Transmission Date: 20110219
  Serious: Yes (Other)
  Sender: FDA-Public Use
  Company Number: US-BAYER-200935707NA

PATIENT
  Age: 45 Year
  Sex: Female

DRUGS (6)
  1. YASMIN [Suspect]
     Indication: PRODUCT USED FOR UNKNOWN INDICATION
  2. YAZ [Suspect]
     Indication: PRODUCT USED FOR UNKNOWN INDICATION
     Route: 048
     Dates: start: 20071201, end: 20080901
  3. LUNESTA [Concomitant]
  4. ADVAIR DISKUS 100/50 [Concomitant]
  5. TUSSINEX [Concomitant]
  6. TAMIFLU [Concomitant]

REACTIONS (1)
  - DEEP VEIN THROMBOSIS [None]
